FAERS Safety Report 8994758 (Version 1)
Quarter: 2012Q4

REPORT INFORMATION
  Report Type: Spontaneous
  Country: US (occurrence: None)
  Receive Date: 20121221
  Receipt Date: 20121221
  Transmission Date: 20130627
  Serious: Yes (Death)
  Sender: FDA-Public Use
  Company Number: DKLU1087296

PATIENT
  Age: 3 Year
  Sex: Male

DRUGS (4)
  1. SABRIL (TABLET) (SABRIL) (VIGABATRIN) (500 MG, TABLET) [Suspect]
     Indication: INFANTILE SPASMS
     Dosage: 750 mg milligram(s), QAM, Oral
     Route: 048
     Dates: start: 20111210, end: 20121215
  2. SABRIL (TABLET) (SABRIL) (VIGABATRIN) (500 MG, TABLET) [Suspect]
     Indication: EPILEPSY
     Dosage: 750 mg milligram(s), QAM, Oral
     Route: 048
     Dates: start: 20111210, end: 20121215
  3. SABRIL (TABLET) (SABRIL) (VIGABATRIN) (500 MG, TABLET) [Suspect]
     Indication: INFANTILE SPASMS
     Dosage: 1000 mg  milligram(s), QHS, Oral
     Route: 048
     Dates: start: 20111210, end: 20121215
  4. SABRIL (TABLET) (SABRIL) (VIGABATRIN) (500 MG, TABLET) [Suspect]
     Indication: EPILEPSY
     Dosage: 1000 mg  milligram(s), QHS, Oral
     Route: 048
     Dates: start: 20111210, end: 20121215

REACTIONS (1)
  - Death [None]
